FAERS Safety Report 6216745-7 (Version None)
Quarter: 2009Q2

REPORT INFORMATION
  Report Type: 
  Country: None (occurrence: None)
  Receive Date: 20090605
  Receipt Date: 20090529
  Transmission Date: 20091009
  Serious: Yes (Hospitalization)
  Sender: FDA-Public Use
  Company Number: PHHO2009IT04374

PATIENT
  Sex: Male
  Weight: 81 kg

DRUGS (5)
  1. EXELON [Suspect]
     Indication: DEMENTIA
     Dosage: 1.5MG X 2
     Route: 048
     Dates: start: 20080726, end: 20080828
  2. EXELON [Suspect]
     Dosage: 3MG X 2
     Route: 048
     Dates: start: 20080829, end: 20090401
  3. STALEVO 100 [Concomitant]
  4. SINEMET [Concomitant]
  5. PROSCAR [Concomitant]

REACTIONS (6)
  - ABDOMINAL PAIN [None]
  - CONCOMITANT DISEASE PROGRESSION [None]
  - CONSTIPATION [None]
  - HYPOTENSION [None]
  - SYNCOPE [None]
  - VERTEBRAL INJURY [None]
